FAERS Safety Report 8769091 (Version 1)
Quarter: 2012Q4

REPORT INFORMATION
  Report Type: 
  Country: BR (occurrence: BR)
  Receive Date: 20120904
  Receipt Date: 20120904
  Transmission Date: 20130627
  Serious: Yes (Other)
  Sender: FDA-Public Use
  Company Number: BR-ELI_LILLY_AND_COMPANY-BR201209000102

PATIENT
  Sex: Female
  Weight: 57 kg

DRUGS (10)
  1. HUMALOG 25% LISPRO, 75% NPL [Suspect]
     Indication: DIABETES MELLITUS
     Dosage: 22 IU, each morning
     Route: 065
     Dates: start: 2008
  2. HUMALOG 25% LISPRO, 75% NPL [Suspect]
     Dosage: 22 IU, each evening
     Route: 065
     Dates: start: 2008
  3. HUMALOG 25% LISPRO, 75% NPL [Suspect]
     Dosage: 20 IU, other
     Route: 065
     Dates: start: 2008
  4. HUMALOG 25% LISPRO, 75% NPL [Suspect]
     Dosage: UNK, prn
     Route: 065
  5. OMEPRAZOL [Concomitant]
     Dosage: UNK, unknown
     Route: 065
  6. SIMETICONA [Concomitant]
     Dosage: UNK, unknown
     Route: 065
  7. PROPRANOLOL [Concomitant]
     Dosage: UNK, unknown
     Route: 065
  8. ESPIRONOLACTONA [Concomitant]
     Indication: ASCITES
     Dosage: UNK, unknown
     Route: 065
  9. FUROSEMIDA                         /00032601/ [Concomitant]
     Indication: ASCITES
     Dosage: UNK, unknown
     Route: 065
  10. HIPERICO [Concomitant]
     Indication: DEPRESSION
     Dosage: UNK, unknown
     Route: 065

REACTIONS (2)
  - Blood glucose increased [Not Recovered/Not Resolved]
  - Diabetes mellitus inadequate control [Not Recovered/Not Resolved]
